FAERS Safety Report 23464505 (Version 1)
Quarter: 2024Q1

REPORT INFORMATION
  Report Type: Spontaneous
  Country: US (occurrence: US)
  Receive Date: 20240201
  Receipt Date: 20240201
  Transmission Date: 20240410
  Serious: No
  Sender: FDA-Public Use
  Company Number: US-PERRIGO-23US011727

PATIENT
  Age: 71 Year
  Sex: Female

DRUGS (7)
  1. OMEPRAZOLE [Suspect]
     Active Substance: OMEPRAZOLE
     Indication: Dyspepsia
     Dosage: 20 MG, QD
     Route: 048
     Dates: start: 20230921, end: 20231005
  2. MELOXICAM [Concomitant]
     Active Substance: MELOXICAM
     Indication: Arthritis
     Dosage: UNK
     Route: 065
  3. GABAPENTIN [Concomitant]
     Active Substance: GABAPENTIN
     Indication: Arthritis
     Dosage: UNK
     Route: 065
  4. GABAPENTIN [Concomitant]
     Active Substance: GABAPENTIN
     Indication: Arthralgia
  5. FLUOXETINE [Concomitant]
     Active Substance: FLUOXETINE HYDROCHLORIDE
     Indication: Anxiety
     Dosage: UNK
     Route: 065
  6. GLUCOSAMINE [Concomitant]
     Active Substance: GLUCOSAMINE
     Indication: Routine health maintenance
     Dosage: UNK
     Route: 065
  7. VITAMIN B12 [Concomitant]
     Active Substance: CYANOCOBALAMIN
     Indication: Supplementation therapy
     Dosage: UNK
     Route: 065

REACTIONS (3)
  - Abdominal discomfort [Not Recovered/Not Resolved]
  - Dysgeusia [Recovered/Resolved]
  - Drug ineffective [Unknown]

NARRATIVE: CASE EVENT DATE: 20230921
